FAERS Safety Report 6245995-9 (Version None)
Quarter: 2009Q2

REPORT INFORMATION
  Report Type: 
  Country: None (occurrence: None)
  Receive Date: 20090626
  Receipt Date: 20081008
  Transmission Date: 20091009
  Serious: No
  Sender: FDA-Public Use
  Company Number: A0751138A

PATIENT
  Age: 43 Year
  Sex: Female

DRUGS (5)
  1. IMITREX [Suspect]
     Indication: MIGRAINE
     Dosage: 100MG AS REQUIRED
     Route: 048
  2. DEPO-PROVERA [Concomitant]
     Indication: CONTRACEPTION
  3. PROPRANOLOL [Concomitant]
     Indication: MIGRAINE
  4. COPAXONE [Concomitant]
  5. PAIN KILLERS [Concomitant]

REACTIONS (1)
  - DRUG INEFFECTIVE [None]
